FAERS Safety Report 8037478-0 (Version None)
Quarter: 2012Q1

REPORT INFORMATION
  Report Type: 
  Country: None (occurrence: None)
  Receive Date: 20120111
  Receipt Date: 20120111
  Transmission Date: 20120608
  Serious: Yes (Other)
  Sender: FDA-Public Use
  Company Number: DE-PFIZER INC-2011106238

PATIENT
  Sex: Female
  Weight: 43 kg

DRUGS (2)
  1. FOLIC ACID [Concomitant]
     Indication: PROPHYLAXIS OF NEURAL TUBE DEFECT
     Dosage: 0.8, UNIT AND FREQUENCY NOT PROVIDED
     Route: 048
     Dates: start: 20110208, end: 20110214
  2. LYRICA [Suspect]
     Indication: BORDERLINE PERSONALITY DISORDER
     Dosage: 225-375 MG PER DAY
     Route: 048
     Dates: start: 20110104, end: 20110210

REACTIONS (1)
  - ABORTION SPONTANEOUS [None]
